FAERS Safety Report 4909447-8 (Version None)
Quarter: 2006Q1

REPORT INFORMATION
  Report Type: 
  Country: None (occurrence: None)
  Receive Date: 20060213
  Receipt Date: 20060111
  Transmission Date: 20060701
  Serious: Yes (Hospitalization, Disabling)
  Sender: FDA-Public Use
  Company Number: US-MERCK-0601USA01314

PATIENT
  Age: 52 Year
  Sex: Male
  Weight: 118 kg

DRUGS (3)
  1. TYLENOL W/ CODEINE NO. 4 [Concomitant]
     Route: 065
  2. PERCOCET [Concomitant]
     Route: 065
  3. VIOXX [Suspect]
     Indication: ARTHRITIS
     Route: 048
     Dates: start: 20020101, end: 20030101

REACTIONS (3)
  - CEREBROVASCULAR ACCIDENT [None]
  - HAEMORRHOIDAL HAEMORRHAGE [None]
  - PULMONARY EMBOLISM [None]
